FAERS Safety Report 24964484 (Version 1)
Quarter: 2025Q1

REPORT INFORMATION
  Report Type: Spontaneous
  Country: US (occurrence: US)
  Receive Date: 20250213
  Receipt Date: 20250213
  Transmission Date: 20250409
  Serious: Yes (Death, Other)
  Sender: RANBAXY
  Company Number: US-SUN PHARMACEUTICAL INDUSTRIES LTD-2025R1-493291

PATIENT
  Age: 60 Year
  Sex: Female

DRUGS (4)
  1. PAZOPANIB [Suspect]
     Active Substance: PAZOPANIB
     Indication: Chemotherapy
     Route: 065
  2. ACCUTANE [Suspect]
     Active Substance: ISOTRETINOIN
     Indication: Chemotherapy
     Route: 065
  3. LAPATINIB [Suspect]
     Active Substance: LAPATINIB
     Indication: Chemotherapy
     Route: 065
  4. TEMODAR [Suspect]
     Active Substance: TEMOZOLOMIDE
     Indication: Chemotherapy
     Route: 065

REACTIONS (2)
  - Condition aggravated [Fatal]
  - Nocardiosis [Recovered/Resolved]
